FAERS Safety Report 7931590-X (Version None)
Quarter: 2011Q4

REPORT INFORMATION
  Report Type: 
  Country: None (occurrence: None)
  Receive Date: 20111121
  Receipt Date: 20111110
  Transmission Date: 20120403
  Serious: Yes (Other)
  Sender: FDA-Public Use
  Company Number: US-ASTRAZENECA-2011SE68873

PATIENT
  Sex: Male

DRUGS (1)
  1. PRILOSEC [Suspect]
     Route: 048
     Dates: start: 20111101, end: 20111110

REACTIONS (7)
  - MUSCULOSKELETAL PAIN [None]
  - NECK PAIN [None]
  - HEADACHE [None]
  - VASCULAR PSEUDOANEURYSM [None]
  - OCULAR HYPERAEMIA [None]
  - BLOOD PRESSURE INCREASED [None]
  - HAEMORRHAGE [None]
